FAERS Safety Report 10159057 (Version 1)
Quarter: 2014Q2

REPORT INFORMATION
  Report Type: Spontaneous
  Country: US (occurrence: US)
  Receive Date: 20140508
  Receipt Date: 20140508
  Transmission Date: 20141212
  Serious: Yes (Hospitalization, Other)
  Sender: FDA-Public Use
  Company Number: US-DRREDDYS-USA/USA/14/0040108

PATIENT
  Age: 64 Year
  Sex: Female

DRUGS (3)
  1. TACROLIMUS [Suspect]
     Indication: IMMUNOSUPPRESSION
     Route: 065
  2. SIROLIMUS [Suspect]
     Indication: IMMUNOSUPPRESSION
     Route: 065
  3. PREDNISONE [Concomitant]
     Indication: IMMUNOSUPPRESSION
     Route: 065

REACTIONS (3)
  - Haemolytic uraemic syndrome [Recovering/Resolving]
  - Thrombotic thrombocytopenic purpura [Recovering/Resolving]
  - Bone marrow failure [Recovering/Resolving]
